FAERS Safety Report 20945177 (Version 1)
Quarter: 2022Q2

REPORT INFORMATION
  Report Type: Spontaneous
  Country: US (occurrence: None)
  Receive Date: 20220609
  Receipt Date: 20220609
  Transmission Date: 20220721
  Serious: Yes (Hospitalization)
  Sender: FDA-Public Use
  Company Number: None

PATIENT
  Age: 75 Year
  Sex: Female

DRUGS (1)
  1. LENALIDOMIDE [Suspect]
     Active Substance: LENALIDOMIDE
     Indication: Plasma cell myeloma
     Dosage: 25MG OTHER ORAL
     Route: 048
     Dates: start: 202205, end: 202206

REACTIONS (3)
  - Pyrexia [None]
  - White blood cell count decreased [None]
  - Pneumonia [None]

NARRATIVE: CASE EVENT DATE: 20220608
